FAERS Safety Report 10024984 (Version 6)
Quarter: 2014Q2

REPORT INFORMATION
  Report Type: Report from Study
  Country: US (occurrence: US)
  Receive Date: 20140320
  Receipt Date: 20140617
  Transmission Date: 20141212
  Serious: Yes (Other)
  Sender: FDA-Public Use
  Company Number: US-TEVA-469845USA

PATIENT
  Age: 19 Year
  Sex: Female

DRUGS (3)
  1. CLARAVIS [Suspect]
     Indication: ACNE
     Dosage: 30 MILLIGRAM DAILY;
     Route: 048
     Dates: start: 20140211, end: 20140317
  2. BIRTH CONTROL PILLS [Concomitant]
     Route: 048
  3. HORMONAL SKIN PATCH [Concomitant]
     Route: 062

REACTIONS (1)
  - Unintended pregnancy [Recovered/Resolved]
